FAERS Safety Report 15234782 (Version 2)
Quarter: 2018Q3

REPORT INFORMATION
  Report Type: Spontaneous
  Country: US (occurrence: US)
  Receive Date: 20180803
  Receipt Date: 20180807
  Transmission Date: 20181010
  Serious: Yes (Other)
  Sender: FDA-Public Use
  Company Number: US-009507513-1808USA000158

PATIENT
  Age: 76 Year
  Sex: Female

DRUGS (7)
  1. FOSAMAX [Suspect]
     Active Substance: ALENDRONATE SODIUM
     Indication: OSTEOPOROSIS
     Dosage: UNK
     Route: 048
  2. FOSAMAX [Suspect]
     Active Substance: ALENDRONATE SODIUM
     Dosage: UNK
     Route: 048
  3. DENOSUMAB [Concomitant]
     Active Substance: DENOSUMAB
     Indication: OSTEOPOROSIS
     Dosage: 1 DOSE
  4. TERIPARATIDE [Concomitant]
     Active Substance: TERIPARATIDE
     Indication: OSTEOPOROSIS
     Dosage: UNK
  5. TERIPARATIDE [Concomitant]
     Active Substance: TERIPARATIDE
     Dosage: UNK
  6. ZOLEDRONIC ACID [Suspect]
     Active Substance: ZOLEDRONIC ACID
     Indication: OSTEOPOROSIS
     Dosage: UNK
  7. DENOSUMAB [Concomitant]
     Active Substance: DENOSUMAB
     Dosage: UNK

REACTIONS (1)
  - Atypical femur fracture [Unknown]

NARRATIVE: CASE EVENT DATE: 2009
